FAERS Safety Report 12248476 (Version 1)
Quarter: 2016Q2

REPORT INFORMATION
  Report Type: Spontaneous
  Country: US (occurrence: US)
  Receive Date: 20160408
  Receipt Date: 20160408
  Transmission Date: 20160815
  Serious: No
  Sender: FDA-Public Use
  Company Number: US-ELI_LILLY_AND_COMPANY-US201603011367

PATIENT
  Sex: Male

DRUGS (3)
  1. GABAPENTIN. [Interacting]
     Active Substance: GABAPENTIN
     Indication: PRODUCT USED FOR UNKNOWN INDICATION
     Dosage: UNK, UNKNOWN
     Route: 065
  2. CIALIS [Suspect]
     Active Substance: TADALAFIL
     Indication: ERECTILE DYSFUNCTION
     Dosage: 10 MG, PRN
     Route: 065
  3. CIALIS [Interacting]
     Active Substance: TADALAFIL
     Dosage: 20 MG, PRN
     Route: 065

REACTIONS (3)
  - Vision blurred [Unknown]
  - Drug interaction [Unknown]
  - Therapeutic response decreased [Unknown]
